FAERS Safety Report 5587056-8 (Version None)
Quarter: 2008Q1

REPORT INFORMATION
  Report Type: 
  Country: None (occurrence: None)
  Receive Date: 20080110
  Receipt Date: 20080103
  Transmission Date: 20080703
  Serious: Yes (Other)
  Sender: FDA-Public Use
  Company Number: B0361153A

PATIENT
  Age: 31 Year
  Sex: Female

DRUGS (1)
  1. PAROXETINE HYDROCHLORIDE [Suspect]
     Indication: DEPRESSION
     Dosage: 20MG PER DAY
     Route: 065
     Dates: start: 20000914, end: 20010901

REACTIONS (15)
  - COORDINATION ABNORMAL [None]
  - CRYING [None]
  - DIZZINESS [None]
  - GAIT DISTURBANCE [None]
  - HYPOAESTHESIA [None]
  - HYPOAESTHESIA FACIAL [None]
  - LABYRINTHITIS [None]
  - NIGHT SWEATS [None]
  - NYSTAGMUS [None]
  - PANIC REACTION [None]
  - SENSORY DISTURBANCE [None]
  - SYNCOPE [None]
  - VERTIGO [None]
  - WEIGHT INCREASED [None]
  - WITHDRAWAL SYNDROME [None]
